FAERS Safety Report 9127417 (Version 1)
Quarter: 2013Q1

REPORT INFORMATION
  Report Type: Report from Study
  Country: CO (occurrence: CO)
  Receive Date: 20130122
  Receipt Date: 20130122
  Transmission Date: 20140127
  Serious: Yes (Death)
  Sender: FDA-Public Use
  Company Number: CO-SANOFI-AVENTIS-2013SA004648

PATIENT
  Sex: 0

DRUGS (3)
  1. RIFAMPICIN [Suspect]
     Indication: TUBERCULOSIS
     Route: 065
  2. ITRACONAZOLE [Interacting]
     Indication: HISTOPLASMOSIS
     Route: 065
  3. AMPHOTERICIN B [Concomitant]
     Indication: HISTOPLASMOSIS

REACTIONS (4)
  - Tuberculosis [Fatal]
  - Treatment failure [Fatal]
  - Drug interaction [Fatal]
  - Histoplasmosis [Fatal]
